FAERS Safety Report 6039796-4 (Version None)
Quarter: 2009Q1

REPORT INFORMATION
  Report Type: 
  Country: None (occurrence: None)
  Receive Date: 20090116
  Receipt Date: 20090106
  Transmission Date: 20090719
  Serious: Yes (Hospitalization)
  Sender: FDA-Public Use
  Company Number: US-BAYER-200910433NA

PATIENT
  Age: 29 Year
  Sex: Female

DRUGS (1)
  1. MIRENA [Suspect]
     Indication: CONTRACEPTION
     Dates: start: 20040301

REACTIONS (6)
  - ABDOMINAL PAIN [None]
  - AMENORRHOEA [None]
  - HEPATITIS B [None]
  - IUCD COMPLICATION [None]
  - JAUNDICE [None]
  - VAGINAL HAEMORRHAGE [None]
